APPROVED DRUG PRODUCT: MIDODRINE HYDROCHLORIDE
Active Ingredient: MIDODRINE HYDROCHLORIDE
Strength: 5MG
Dosage Form/Route: TABLET;ORAL
Application: A076577 | Product #002 | TE Code: AB
Applicant: MYLAN PHARMACEUTICALS INC
Approved: Sep 10, 2003 | RLD: No | RS: No | Type: RX